FAERS Safety Report 16903737 (Version 1)
Quarter: 2019Q4

REPORT INFORMATION
  Report Type: Spontaneous
  Country: US (occurrence: US)
  Receive Date: 20191010
  Receipt Date: 20191010
  Transmission Date: 20200122
  Serious: No
  Sender: FDA-Public Use
  Company Number: US-GLENMARK PHARMACEUTICALS-2019GMK042733

PATIENT

DRUGS (2)
  1. NITROGLYCERIN SUBLINGUAL TABLETS USP 0.4 MG [Suspect]
     Active Substance: NITROGLYCERIN
     Indication: ANGINA PECTORIS
     Dosage: UNK UNK, (3 OR 4 TABLETS) PRN
     Route: 060
     Dates: start: 2014
  2. NITROGLYCERIN SUBLINGUAL TABLETS USP 0.4 MG [Suspect]
     Active Substance: NITROGLYCERIN
     Indication: CHEST PAIN

REACTIONS (2)
  - Intentional product use issue [Unknown]
  - No adverse event [Unknown]
